FAERS Safety Report 8459038-X (Version None)
Quarter: 2012Q2

REPORT INFORMATION
  Report Type: 
  Country: None (occurrence: None)
  Receive Date: 20120618
  Receipt Date: 20120614
  Transmission Date: 20120825
  Serious: Yes (Other)
  Sender: FDA-Public Use
  Company Number: ADR-2012-00682

PATIENT
  Sex: Male

DRUGS (5)
  1. BUPIVACAINE HCL [Concomitant]
  2. BACLOFEN [Suspect]
     Indication: PAIN
     Dosage: 51 MCG/DY
  3. BACLOFEN [Suspect]
     Indication: POST LAMINECTOMY SYNDROME
     Dosage: 51 MCG/DY
  4. BACLOFEN [Suspect]
     Indication: SURGICAL FAILURE
     Dosage: 51 MCG/DY
  5. MORPHINE [Concomitant]

REACTIONS (2)
  - NO THERAPEUTIC RESPONSE [None]
  - DEVICE FAILURE [None]
